FAERS Safety Report 6242162-X (Version None)
Quarter: 2009Q2

REPORT INFORMATION
  Report Type: 
  Country: None (occurrence: None)
  Receive Date: 20090624
  Receipt Date: 20090611
  Transmission Date: 20091009
  Serious: Yes (Other)
  Sender: FDA-Public Use
  Company Number: GB-RANBAXY-2009RR-24859

PATIENT
  Age: 7 Year
  Sex: Female

DRUGS (2)
  1. IBUPROFEN [Suspect]
     Indication: PYREXIA
     Dosage: 100 MG, SINGLE
  2. FLOXACILLIN SODIUM [Concomitant]
     Indication: LOWER RESPIRATORY TRACT INFECTION

REACTIONS (1)
  - RENAL FAILURE ACUTE [None]
